FAERS Safety Report 8425022-5 (Version None)
Quarter: 2012Q2

REPORT INFORMATION
  Report Type: 
  Country: None (occurrence: None)
  Receive Date: 20120611
  Receipt Date: 20120530
  Transmission Date: 20120825
  Serious: Yes (Hospitalization)
  Sender: FDA-Public Use
  Company Number: US-ELI_LILLY_AND_COMPANY-US201205010849

PATIENT
  Sex: Female

DRUGS (4)
  1. HUMALOG [Suspect]
     Indication: DIABETES MELLITUS
     Dosage: UNK UNK, PRN
  2. HUMALOG MIX 75/25 [Suspect]
     Dosage: 80 IU, EACH EVENING
  3. HUMALOG MIX 75/25 [Suspect]
     Indication: DIABETES MELLITUS
     Dosage: 30 IU, EACH MORNING
  4. LANTUS [Concomitant]
     Indication: DIABETES MELLITUS

REACTIONS (1)
  - HOSPITALISATION [None]
